FAERS Safety Report 16269277 (Version 2)
Quarter: 2019Q2

REPORT INFORMATION
  Report Type: Spontaneous
  Country: US (occurrence: US)
  Receive Date: 20190503
  Receipt Date: 20190517
  Transmission Date: 20190711
  Serious: Yes (Other)
  Sender: FDA-Public Use
  Company Number: US-009507513-1904USA010953

PATIENT
  Sex: Female
  Weight: 106.14 kg

DRUGS (1)
  1. NEXPLANON [Suspect]
     Active Substance: ETONOGESTREL
     Indication: CONTRACEPTION
     Dosage: 1 DOSAGE FORM
     Route: 059
     Dates: start: 20180907

REACTIONS (7)
  - Hypoaesthesia [Unknown]
  - Complication of device removal [Recovered/Resolved]
  - Device dislocation [Recovered/Resolved]
  - Menstruation irregular [Unknown]
  - Weight increased [Unknown]
  - Pain in extremity [Unknown]
  - Device deployment issue [Recovered/Resolved]
